FAERS Safety Report 16729040 (Version 2)
Quarter: 2019Q4

REPORT INFORMATION
  Report Type: Report from Study
  Country: US (occurrence: US)
  Receive Date: 20190822
  Receipt Date: 20191023
  Transmission Date: 20200122
  Serious: Yes (Hospitalization, Other)
  Sender: FDA-Public Use
  Company Number: US-TAIHO ONCOLOGY  INC-EU-2019-02251

PATIENT
  Age: 70 Year
  Sex: Male

DRUGS (2)
  1. LONSURF [Suspect]
     Active Substance: TIPIRACIL HYDROCHLORIDE\TRIFLURIDINE
     Indication: COLORECTAL CANCER METASTATIC
     Dosage: CYCLES UNKNOWN.
     Route: 048
     Dates: start: 20190417, end: 2019
  2. LONSURF [Suspect]
     Active Substance: TIPIRACIL HYDROCHLORIDE\TRIFLURIDINE
     Dosage: CYCLES UNKNOWN. DOSE REDUCED ON AN UNSPECIFIED DATE.
     Route: 048
     Dates: start: 2019, end: 20191014

REACTIONS (3)
  - Neutrophil count decreased [Recovered/Resolved]
  - Small intestinal obstruction [Recovered/Resolved]
  - Haemoglobin decreased [Recovered/Resolved]

NARRATIVE: CASE EVENT DATE: 20190610
